FAERS Safety Report 10416286 (Version 1)
Quarter: 2014Q3

REPORT INFORMATION
  Report Type: Spontaneous
  Country: US (occurrence: None)
  Receive Date: 20140827
  Receipt Date: 20140827
  Transmission Date: 20150326
  Serious: No
  Sender: FDA-Public Use
  Company Number: None

PATIENT
  Age: 55 Year
  Sex: Female
  Weight: 56.7 kg

DRUGS (1)
  1. OXAZEPAM. [Suspect]
     Active Substance: OXAZEPAM
     Indication: ANXIETY
     Dosage: 2 CAPSULES 2X DAILY 40MG TOTAL  TWICE DAILY TAKEN BY MOUTH?AS LONG AS NEEDED
     Route: 048

REACTIONS (10)
  - Dizziness [None]
  - Drug dependence [None]
  - Memory impairment [None]
  - Product quality issue [None]
  - Insomnia [None]
  - Pruritus [None]
  - Malaise [None]
  - Product substitution issue [None]
  - Drug withdrawal syndrome [None]
  - Hyperhidrosis [None]

NARRATIVE: CASE EVENT DATE: 20140825
